FAERS Safety Report 5080394-7 (Version None)
Quarter: 2006Q3

REPORT INFORMATION
  Report Type: 
  Country: None (occurrence: None)
  Receive Date: 20060815
  Receipt Date: 20060804
  Transmission Date: 20061208
  Serious: Yes (Other)
  Sender: FDA-Public Use
  Company Number: ZA-ROCHE-458356

PATIENT
  Sex: Female

DRUGS (2)
  1. ROCEPHIN [Suspect]
     Indication: PROPHYLAXIS
     Route: 042
  2. OXYTOCIC NOS [Concomitant]
     Route: 042

REACTIONS (2)
  - HYPOTENSION [None]
  - RASH [None]
